FAERS Safety Report 14919880 (Version 1)
Quarter: 2018Q2

REPORT INFORMATION
  Report Type: Report from Study
  Country: CA (occurrence: CA)
  Receive Date: 20180521
  Receipt Date: 20180521
  Transmission Date: 20180711
  Serious: Yes (Death)
  Sender: FDA-Public Use
  Company Number: CA-MYLANLABS-2018M1032735

PATIENT
  Sex: Female

DRUGS (2)
  1. LINSITINIB [Suspect]
     Active Substance: LINSITINIB
     Indication: OVARIAN CANCER
     Dosage: 150 MG
     Route: 048
  2. PACLITAXEL. [Suspect]
     Active Substance: PACLITAXEL
     Indication: OVARIAN CANCER
     Dosage: 80 MG/M2,QW, ON DAYS 1, 8 AND 15 OF EACH 21-DAY CYCLE
     Route: 042

REACTIONS (2)
  - Pneumonitis [Fatal]
  - Pulmonary embolism [Fatal]
